FAERS Safety Report 8653120 (Version 2)
Quarter: 2012Q4

REPORT INFORMATION
  Report Type: 
  Country: US (occurrence: US)
  Receive Date: 20120706
  Receipt Date: 20121015
  Transmission Date: 20130627
  Serious: No
  Sender: FDA-Public Use
  Company Number: US-ASTRAZENECA-2012SE42553

PATIENT
  Age: 57 Year
  Sex: Female

DRUGS (2)
  1. NEXIUM [Suspect]
     Route: 048
  2. NEXIUM [Suspect]
     Dosage: DOUBLED DOSAGE
     Route: 048

REACTIONS (3)
  - Viral infection [Unknown]
  - Gastroenteritis viral [Unknown]
  - Rheumatoid arthritis [Unknown]
